FAERS Safety Report 6713531-6 (Version None)
Quarter: 2010Q2

REPORT INFORMATION
  Report Type: 
  Country: None (occurrence: None)
  Receive Date: 20100506
  Receipt Date: 20100427
  Transmission Date: 20101027
  Serious: Yes (Other)
  Sender: FDA-Public Use
  Company Number: CA-JNJFOC-20100407062

PATIENT
  Sex: Male
  Weight: 145.15 kg

DRUGS (2)
  1. STELARA [Suspect]
     Indication: PSORIASIS
     Route: 058
     Dates: start: 20090922, end: 20091020
  2. STELARA [Suspect]
     Route: 058
     Dates: start: 20090922, end: 20091020

REACTIONS (2)
  - PROSTATE CANCER [None]
  - PSORIASIS [None]
